FAERS Safety Report 5106249-7 (Version None)
Quarter: 2006Q3

REPORT INFORMATION
  Report Type: 
  Country: None (occurrence: None)
  Receive Date: 20060918
  Receipt Date: 20060828
  Transmission Date: 20061208
  Serious: Yes (Hospitalization)
  Sender: FDA-Public Use
  Company Number: PHRM2006FR02456

PATIENT
  Age: 67 Year
  Sex: Female

DRUGS (4)
  1. ALEPSAL [Suspect]
     Dosage: 2 TABLETS DAILY
     Route: 048
     Dates: start: 20060623
  2. AMLOR [Suspect]
     Dosage: 5 MG, QD
     Route: 048
  3. LAMICTAL [Suspect]
     Indication: CONVULSION
     Dosage: 100 MG, QD
     Route: 048
     Dates: start: 20060704, end: 20060806
  4. TEGRETOL [Suspect]
     Indication: CONVULSION
     Dosage: 800 MG, DAILY
     Route: 048
     Dates: start: 20060623, end: 20060628

REACTIONS (4)
  - BLADDER CATHETERISATION [None]
  - PULMONARY EMBOLISM [None]
  - PYREXIA [None]
  - URINE ANALYSIS ABNORMAL [None]
